FAERS Safety Report 4657651-9 (Version None)
Quarter: 2005Q2

REPORT INFORMATION
  Report Type: 
  Country: None (occurrence: None)
  Receive Date: 20050509
  Receipt Date: 20050509
  Transmission Date: 20051028
  Serious: No
  Sender: FDA-Public Use
  Company Number: None

PATIENT
  Sex: Male
  Weight: 74.8435 kg

DRUGS (6)
  1. AREDIA [Suspect]
     Indication: MULTIPLE MYELOMA
     Dosage: 90 MG IV MONTHLY
     Route: 042
     Dates: start: 19990823, end: 20050204
  2. EPOGEN [Concomitant]
  3. CARMUSTINE [Concomitant]
  4. CYTOXAN [Concomitant]
  5. VINCRISTINE [Concomitant]
  6. ADRIAMYCIN PFS [Concomitant]

REACTIONS (2)
  - JAW DISORDER [None]
  - NECROSIS [None]
